FAERS Safety Report 9047268 (Version 1)
Quarter: 2013Q1

REPORT INFORMATION
  Report Type: Report from Study
  Country: US (occurrence: US)
  Receive Date: 20130131
  Receipt Date: 20130131
  Transmission Date: 20140127
  Serious: No
  Sender: FDA-Public Use
  Company Number: US-ABBOTT-12P-163-0979732-00

PATIENT
  Age: 38 Year
  Sex: Female

DRUGS (11)
  1. HUMIRA [Suspect]
     Indication: RHEUMATOID ARTHRITIS
     Route: 058
     Dates: start: 20120913
  2. TRILEPTAL [Concomitant]
     Indication: CONVULSION
  3. ICAR-C PLUS [Concomitant]
     Indication: ANAEMIA
     Dosage: ONE EVERY OTHER DAY
  4. NEXIUM [Concomitant]
     Indication: GASTRIC DISORDER
  5. ASPIRIN [Concomitant]
     Indication: CEREBROVASCULAR ACCIDENT PROPHYLAXIS
  6. SINGULAIR [Concomitant]
     Indication: ASTHMA
  7. ZOCOR [Concomitant]
     Indication: BLOOD CHOLESTEROL
     Dosage: 1/2 TABLET A DAY
  8. METHOTREXATE [Concomitant]
     Indication: RHEUMATOID ARTHRITIS
     Dosage: 2.5MG 7 WEEKLY
  9. METHOTREXATE [Concomitant]
     Indication: PSORIASIS
  10. FOLIC ACID [Concomitant]
     Indication: MOUTH ULCERATION
  11. VITAMIN D [Concomitant]
     Indication: VITAMIN SUPPLEMENTATION

REACTIONS (1)
  - Injection site haemorrhage [Recovered/Resolved]
